FAERS Safety Report 8320488-3 (Version None)
Quarter: 2012Q2

REPORT INFORMATION
  Report Type: 
  Country: None (occurrence: None)
  Receive Date: 20120427
  Receipt Date: 20120427
  Transmission Date: 20120825
  Serious: No
  Sender: FDA-Public Use
  Company Number: None

PATIENT
  Age: 40 Year
  Sex: Female
  Weight: 58.967 kg

DRUGS (1)
  1. LYRICA [Suspect]
     Indication: FIBROMYALGIA
     Dates: start: 20050605, end: 20050608

REACTIONS (4)
  - SKIN DISCOLOURATION [None]
  - SWELLING [None]
  - DRUG HYPERSENSITIVITY [None]
  - MOVEMENT DISORDER [None]
